FAERS Safety Report 4595837-2 (Version None)
Quarter: 2005Q1

REPORT INFORMATION
  Report Type: 
  Country: None (occurrence: None)
  Receive Date: 20050224
  Receipt Date: 20050208
  Transmission Date: 20050727
  Serious: Yes (Hospitalization)
  Sender: FDA-Public Use
  Company Number: 2005GB00348

PATIENT
  Age: 72 Year
  Sex: Female
  Weight: 70.7 kg

DRUGS (7)
  1. NOLVADEX [Suspect]
     Indication: BREAST CANCER
     Dosage: 20 MG QD PO
     Route: 048
     Dates: start: 19970509, end: 20021018
  2. LANSOPRAZOLE [Concomitant]
  3. VIOXX [Concomitant]
  4. CO-DYDRAMOL [Concomitant]
  5. PREDNISOLONE [Concomitant]
  6. ALENDRONATE SODIUM [Concomitant]
  7. ACETAMINOPHEN [Concomitant]

REACTIONS (1)
  - OSTEOARTHRITIS [None]
